FAERS Safety Report 9853959 (Version 1)
Quarter: 2014Q1

REPORT INFORMATION
  Report Type: Spontaneous
  Country: US (occurrence: US)
  Receive Date: 20140129
  Receipt Date: 20140129
  Transmission Date: 20141002
  Serious: No
  Sender: FDA-Public Use
  Company Number: US-PFIZER INC-2014025894

PATIENT
  Sex: Male

DRUGS (3)
  1. LIPITOR [Suspect]
     Indication: BLOOD CHOLESTEROL INCREASED
     Dosage: 10 MG, UNK
  2. LIPITOR [Suspect]
     Dosage: 20 MG, 1X/DAY
  3. LIPITOR [Suspect]
     Dosage: 40 MG, 1X/DAY

REACTIONS (1)
  - Drug ineffective [Unknown]
